FAERS Safety Report 8609079-4 (Version None)
Quarter: 2012Q3

REPORT INFORMATION
  Report Type: 
  Country: None (occurrence: None)
  Receive Date: 20120821
  Receipt Date: 20120814
  Transmission Date: 20120928
  Serious: Yes (Death, Hospitalization, Other)
  Sender: FDA-Public Use
  Company Number: US-JNJFOC-20090707776

PATIENT
  Age: 52 Year
  Sex: Male

DRUGS (12)
  1. PREDNISOLONE [Suspect]
     Indication: CROHN'S DISEASE
  2. CORTICOSTEROID UNSPECIFIED [Suspect]
     Indication: CROHN'S DISEASE
  3. CHOP NOS [Suspect]
     Indication: CHEMOTHERAPY
  4. NORTRIPTYLINE [Concomitant]
     Indication: PAIN
  5. PREDNISONE TAB [Concomitant]
  6. HUMIRA [Suspect]
     Indication: CROHN'S DISEASE
     Dates: start: 20050101
  7. AZATHIOPRINE SODIUM [Suspect]
     Indication: CROHN'S DISEASE
     Dates: start: 19890101
  8. METHADONE HYDROCHLORIDE [Concomitant]
     Indication: PAIN
  9. REMICADE [Suspect]
     Indication: CROHN'S DISEASE
     Dosage: 3 TOTAL INFUSIONS
     Route: 042
     Dates: start: 20000101
  10. REMICADE [Suspect]
     Dosage: 1 INFUSION
     Route: 042
     Dates: start: 20050101, end: 20050101
  11. TYSABRI [Suspect]
     Indication: CROHN'S DISEASE
     Dosage: INTERVAL FROM 1ST DOSE TO THE EVENT WAS 7 MONTHS; 3 TOTAL DOSES RECEIVED
     Route: 042
     Dates: start: 20080530, end: 20080730
  12. DICE (DEXAMETHASONE,IFOSFAMIDE,CISPLATIN, ETOPOSIDE) [Suspect]
     Indication: CHEMOTHERAPY

REACTIONS (10)
  - THROMBOCYTOPENIA [None]
  - MYELODYSPLASTIC SYNDROME [None]
  - POLYP [None]
  - HEPATOSPLENIC T-CELL LYMPHOMA [None]
  - NEUTROPENIC SEPSIS [None]
  - ANAPHYLACTOID REACTION [None]
  - POLYCYTHAEMIA VERA [None]
  - DRUG INEFFECTIVE [None]
  - MYELOPROLIFERATIVE DISORDER [None]
  - MYELOFIBROSIS [None]
